FAERS Safety Report 20382283 (Version 1)
Quarter: 2022Q1

REPORT INFORMATION
  Report Type: Spontaneous
  Country: US (occurrence: US)
  Receive Date: 20220127
  Receipt Date: 20220127
  Transmission Date: 20220424
  Serious: Yes (Hospitalization)
  Sender: FDA-Public Use
  Company Number: US-PIRAMAL PHARMA LIMITED-2020-PEL-000728

PATIENT

DRUGS (5)
  1. GABLOFEN [Suspect]
     Active Substance: BACLOFEN
     Indication: Product used for unknown indication
     Dosage: 1015 MICROGRAM PER DAY
     Route: 037
     Dates: start: 2002
  2. GABLOFEN [Suspect]
     Active Substance: BACLOFEN
     Dosage: DOSE INCREASED BY 30%
     Route: 037
     Dates: start: 20201007
  3. GABLOFEN [Suspect]
     Active Substance: BACLOFEN
     Dosage: 710 MICROGRAM PER DAY
     Route: 037
     Dates: start: 20201008
  4. GABLOFEN [Suspect]
     Active Substance: BACLOFEN
     Dosage: 425 MICROGRAM PER DAY
     Route: 037
     Dates: start: 20201014
  5. GABLOFEN [Suspect]
     Active Substance: BACLOFEN
     Dosage: 340 MICROGRAM PER DAY
     Route: 037
     Dates: start: 20201016

REACTIONS (2)
  - Overdose [Recovering/Resolving]
  - Drug ineffective [Unknown]

NARRATIVE: CASE EVENT DATE: 20201008
